FAERS Safety Report 9791765 (Version 1)
Quarter: 2014Q1

REPORT INFORMATION
  Report Type: Spontaneous
  Country: RU (occurrence: RU)
  Receive Date: 20140102
  Receipt Date: 20140102
  Transmission Date: 20141002
  Serious: Yes (Other)
  Sender: FDA-Public Use
  Company Number: RU-JNJFOC-20131216501

PATIENT
  Age: 26 Year
  Sex: Female
  Weight: 46 kg

DRUGS (3)
  1. REMICADE [Suspect]
     Indication: CROHN^S DISEASE
     Dosage: APPROX. 7 INFUSIONS (15 FLASKS)
     Route: 042
     Dates: start: 20120803, end: 20130828
  2. SALOFALK [Concomitant]
     Route: 065
     Dates: start: 2011, end: 20131225
  3. AZATHIOPRINE [Concomitant]
     Route: 065
     Dates: start: 201110, end: 201312

REACTIONS (1)
  - Pulmonary tuberculosis [Unknown]
